FAERS Safety Report 6018082-2 (Version None)
Quarter: 2008Q4

REPORT INFORMATION
  Report Type: 
  Country: None (occurrence: None)
  Receive Date: 20081223
  Receipt Date: 20081212
  Transmission Date: 20090506
  Serious: Yes (Other)
  Sender: FDA-Public Use
  Company Number: GB-ROCHE-598492

PATIENT
  Sex: Male

DRUGS (3)
  1. PEGASYS [Suspect]
     Indication: HEPATITIS C
     Dosage: DOSING AMOUNT ALSO REPORTED AS 0.5MLS
     Route: 058
     Dates: start: 20080728
  2. COPEGUS [Suspect]
     Indication: HEPATITIS C
     Dosage: REPORTED AS 800MG DAILY IN TWO DOSES
     Route: 048
     Dates: start: 20080728
  3. ZOPICLONE [Concomitant]
     Indication: INSOMNIA
     Dosage: 3.75 - DOSING AMOUNT
     Route: 048
     Dates: start: 20080818

REACTIONS (2)
  - DELUSIONAL DISORDER, PERSECUTORY TYPE [None]
  - HALLUCINATION [None]
